FAERS Safety Report 16651960 (Version 4)
Quarter: 2019Q4

REPORT INFORMATION
  Report Type: Spontaneous
  Country: US (occurrence: US)
  Receive Date: 20190731
  Receipt Date: 20191112
  Transmission Date: 20200122
  Serious: No
  Sender: FDA-Public Use
  Company Number: US-PFIZER INC-2019326232

PATIENT
  Age: 55 Year
  Sex: Male
  Weight: 33 kg

DRUGS (3)
  1. LYRICA [Suspect]
     Active Substance: PREGABALIN
     Indication: DIABETIC NEUROPATHY
     Dosage: 100 MG, UNK
  2. GABAPENTIN. [Concomitant]
     Active Substance: GABAPENTIN
     Dosage: 1200 MG, DAILY(300 MG BY MOUTH TWICE A DAY AND 600 MG AT NIGHT)
     Route: 048
  3. LYRICA [Suspect]
     Active Substance: PREGABALIN
     Dosage: 150 MG, UNK

REACTIONS (2)
  - Off label use [Unknown]
  - Drug ineffective [Unknown]
